FAERS Safety Report 11940113 (Version 1)
Quarter: 2016Q1

REPORT INFORMATION
  Report Type: Spontaneous
  Country: US (occurrence: US)
  Receive Date: 20160122
  Receipt Date: 20160122
  Transmission Date: 20160526
  Serious: Yes (Other)
  Sender: FDA-Public Use
  Company Number: US-MEDTRONIC-1046783

PATIENT
  Age: 51 Year
  Sex: Male

DRUGS (5)
  1. TEGRETOL [Suspect]
     Active Substance: CARBAMAZEPINE
  2. BACLOFEN UNKNOWN [Suspect]
     Active Substance: BACLOFEN
     Indication: MUSCLE SPASTICITY
     Route: 037
  3. MORPHINE SULFATE. [Suspect]
     Active Substance: MORPHINE SULFATE
     Route: 048
  4. UNSPECIFIED MEDICATIONS [Suspect]
     Active Substance: UNSPECIFIED INGREDIENT
  5. MORPHINE SULFATE. [Suspect]
     Active Substance: MORPHINE SULFATE
     Route: 037

REACTIONS (13)
  - Haemorrhage [None]
  - Dysgeusia [None]
  - Procedural pain [None]
  - Drug hypersensitivity [None]
  - Overdose [None]
  - Drug withdrawal syndrome [None]
  - Pain [None]
  - Furuncle [None]
  - Drug hypersensitivity [None]
  - Lung disorder [None]
  - Cardiac disorder [None]
  - Feeling abnormal [None]
  - Muscle spasms [None]

NARRATIVE: CASE EVENT DATE: 2009
